FAERS Safety Report 12022693 (Version 1)
Quarter: 2016Q1

REPORT INFORMATION
  Report Type: Report from Study
  Country: US (occurrence: US)
  Receive Date: 20160206
  Receipt Date: 20160206
  Transmission Date: 20160526
  Serious: No
  Sender: FDA-Public Use
  Company Number: US-ABBVIE-15K-163-1472304-00

PATIENT
  Age: 30 Year
  Sex: Male

DRUGS (1)
  1. HUMIRA [Suspect]
     Active Substance: ADALIMUMAB
     Indication: COLITIS ULCERATIVE
     Route: 065

REACTIONS (8)
  - Eye pruritus [Unknown]
  - Injection site swelling [Not Recovered/Not Resolved]
  - Cough [Unknown]
  - Sinus disorder [Unknown]
  - Rhinorrhoea [Unknown]
  - Injection site erythema [Not Recovered/Not Resolved]
  - Headache [Unknown]
  - Injection site pruritus [Not Recovered/Not Resolved]

NARRATIVE: CASE EVENT DATE: 20150918
